FAERS Safety Report 5207960-X (Version None)
Quarter: 2007Q1

REPORT INFORMATION
  Report Type: 
  Country: None (occurrence: None)
  Receive Date: 20070115
  Receipt Date: 20070110
  Transmission Date: 20070707
  Serious: Yes (Hospitalization, Other)
  Sender: FDA-Public Use
  Company Number: US-ELI_LILLY_AND_COMPANY-US200609003693

PATIENT
  Age: 57 Year
  Sex: Female
  Weight: 91.156 kg

DRUGS (2)
  1. ZYPREXA [Suspect]
     Dosage: 7.5 MG, UNK
     Dates: start: 19980101
  2. ZYPREXA [Suspect]
     Dosage: 5 MG, UNK
     Dates: end: 20000101

REACTIONS (8)
  - AMNESIA [None]
  - DIABETES MELLITUS [None]
  - DIABETIC COMA [None]
  - EYE MOVEMENT DISORDER [None]
  - HEAD TITUBATION [None]
  - MENTAL DISORDER [None]
  - MYOCARDIAL INFARCTION [None]
  - STENT PLACEMENT [None]
